FAERS Safety Report 8667957 (Version 3)
Quarter: 2013Q1

REPORT INFORMATION
  Report Type: Report from Study
  Country: JP (occurrence: JP)
  Receive Date: 20120717
  Receipt Date: 20130205
  Transmission Date: 20140127
  Serious: Yes (Other)
  Sender: FDA-Public Use
  Company Number: JP-009507513-1207JPN001794

PATIENT
  Age: 49 Year
  Sex: Male
  Weight: 64 kg

DRUGS (12)
  1. PEGINTRON [Suspect]
     Indication: CHRONIC HEPATITIS C
     Dosage: 1.5 MICROGRAM PER KILOGRAM, QW
     Route: 058
     Dates: start: 20120424, end: 20120521
  2. PEGINTRON [Suspect]
     Dosage: 1.2  MICROGRAM PER KILOGRAM, QW
     Route: 058
     Dates: start: 20120522, end: 20120716
  3. PEGINTRON [Suspect]
     Dosage: 0.6 MICROGRAM PER KILOGRAM, QW
     Route: 058
     Dates: start: 20120717
  4. REBETOL [Suspect]
     Indication: CHRONIC HEPATITIS C
     Dosage: 800 MG, QD
     Route: 048
     Dates: start: 20120424, end: 20120501
  5. REBETOL [Suspect]
     Dosage: 600 MG, QD
     Route: 048
     Dates: start: 20120502, end: 20120503
  6. REBETOL [Suspect]
     Dosage: 400 MG, QD
     Route: 048
     Dates: start: 20120504, end: 20120514
  7. REBETOL [Suspect]
     Dosage: 200 MG, QD
     Route: 048
     Dates: start: 20120515
  8. TELAPREVIR [Suspect]
     Indication: CHRONIC HEPATITIS C
     Dosage: 2250 MG , QD
     Route: 048
     Dates: start: 20120424, end: 20120514
  9. TELAPREVIR [Suspect]
     Dosage: 1500 MG , QD
     Route: 048
     Dates: start: 20120515, end: 20120702
  10. TELAPREVIR [Suspect]
     Dosage: 750 MG, QD
     Route: 048
     Dates: start: 20120703, end: 20120716
  11. ACTOS [Concomitant]
     Indication: DIABETES MELLITUS
     Dosage: 60 MG, QD, FORMULATION : POR
     Route: 048
  12. DAONIL [Concomitant]
     Indication: DIABETES MELLITUS
     Dosage: 5 MG, QD, FORMULATION : POR
     Route: 048

REACTIONS (2)
  - Hyperuricaemia [Recovered/Resolved]
  - Anaemia [Recovered/Resolved]
